FAERS Safety Report 14692383 (Version 1)
Quarter: 2018Q1

REPORT INFORMATION
  Report Type: Spontaneous
  Country: FR (occurrence: FR)
  Receive Date: 20180329
  Receipt Date: 20180329
  Transmission Date: 20180509
  Serious: Yes (Hospitalization)
  Sender: FDA-Public Use
  Company Number: FR-ASTRAZENECA-2018SE36525

PATIENT
  Age: 37 Year
  Sex: Female

DRUGS (5)
  1. VALPROATE SODIUM. [Suspect]
     Active Substance: VALPROATE SODIUM
     Indication: EPILEPSY
     Route: 048
     Dates: start: 2014
  2. CHLORAL HYDRATE [Interacting]
     Active Substance: CHLORAL HYDRATE
     Indication: AUTISM SPECTRUM DISORDER
     Route: 048
     Dates: start: 2014
  3. QUETIAPINE. [Suspect]
     Active Substance: QUETIAPINE
     Indication: AUTISM SPECTRUM DISORDER
     Route: 048
     Dates: start: 2014
  4. OXAZEPAM. [Suspect]
     Active Substance: OXAZEPAM
     Indication: AUTISM SPECTRUM DISORDER
     Route: 048
     Dates: start: 2014
  5. TERCIAN [Interacting]
     Active Substance: CYAMEMAZINE
     Indication: AUTISM SPECTRUM DISORDER
     Route: 048
     Dates: start: 2014

REACTIONS (2)
  - Subileus [Recovering/Resolving]
  - Faecal vomiting [Recovering/Resolving]

NARRATIVE: CASE EVENT DATE: 20180217
